FAERS Safety Report 5731936-7 (Version None)
Quarter: 2008Q2

REPORT INFORMATION
  Report Type: 
  Country: None (occurrence: None)
  Receive Date: 20080508
  Receipt Date: 20080502
  Transmission Date: 20081010
  Serious: Yes (Hospitalization)
  Sender: FDA-Public Use
  Company Number: US-MERCK-0805USA00623

PATIENT
  Age: 61 Year
  Sex: Female

DRUGS (3)
  1. FOSAMAX [Suspect]
     Indication: BONE DENSITY DECREASED
     Route: 048
     Dates: start: 20040501
  2. NADOLOL [Concomitant]
     Route: 065
  3. SIMVASTATIN [Concomitant]
     Route: 065

REACTIONS (2)
  - ADVERSE EVENT [None]
  - ATRIAL FIBRILLATION [None]
